FAERS Safety Report 9929342 (Version 4)
Quarter: 2014Q2

REPORT INFORMATION
  Report Type: Spontaneous
  Country: US (occurrence: US)
  Receive Date: 20140227
  Receipt Date: 20140613
  Transmission Date: 20141212
  Serious: Yes (Other)
  Sender: FDA-Public Use
  Company Number: US-BAYER-2014-030371

PATIENT
  Age: 47 Year
  Sex: Female

DRUGS (3)
  1. MAGNEVIST [Suspect]
     Indication: NUCLEAR MAGNETIC RESONANCE IMAGING
     Dosage: 20 ML, ONCE
     Route: 042
     Dates: start: 20120427, end: 20120427
  2. MAGNEVIST [Suspect]
     Indication: BIOPSY BREAST
     Dosage: 20 ML, ONCE
     Route: 042
     Dates: start: 20120504, end: 20120504
  3. AMBIEN [Concomitant]

REACTIONS (1)
  - Blood heavy metal increased [None]
